FAERS Safety Report 22294049 (Version 3)
Quarter: 2023Q2

REPORT INFORMATION
  Report Type: Report from Study
  Country: US (occurrence: US)
  Receive Date: 20230508
  Receipt Date: 20230607
  Transmission Date: 20230722
  Serious: Yes (Other)
  Sender: FDA-Public Use
  Company Number: US-BRISTOL-MYERS SQUIBB COMPANY-2023-064327

PATIENT
  Age: 71 Year
  Sex: Female

DRUGS (1)
  1. ZEPOSIA [Suspect]
     Active Substance: OZANIMOD HYDROCHLORIDE
     Indication: Multiple sclerosis
     Route: 048
     Dates: start: 20230319, end: 20230517

REACTIONS (8)
  - Headache [Unknown]
  - Bronchitis [Unknown]
  - Breast pain [Unknown]
  - Throat irritation [Unknown]
  - Nausea [Unknown]
  - Dyspepsia [Unknown]
  - Chest discomfort [Unknown]
  - Myocardial infarction [Unknown]

NARRATIVE: CASE EVENT DATE: 20230517
